FAERS Safety Report 14235125 (Version 1)
Quarter: 2017Q4

REPORT INFORMATION
  Report Type: Spontaneous
  Country: GB (occurrence: GB)
  Receive Date: 20171129
  Receipt Date: 20171129
  Transmission Date: 20180321
  Serious: Yes (Hospitalization)
  Sender: FDA-Public Use
  Company Number: GB-B.I. PHARMACEUTICALS,INC./RIDGEFIELD-2017-12-000005

PATIENT
  Age: 53 Year
  Sex: Female

DRUGS (1)
  1. GILOTRIF [Suspect]
     Active Substance: AFATINIB
     Indication: NON-SMALL CELL LUNG CANCER
     Dosage: 3 CYCLES
     Route: 048
     Dates: start: 20170803, end: 20171024

REACTIONS (4)
  - Embolic cerebral infarction [Unknown]
  - Depressed level of consciousness [Not Recovered/Not Resolved]
  - Meningioma [Unknown]
  - Confusional state [Not Recovered/Not Resolved]

NARRATIVE: CASE EVENT DATE: 20171009
